FAERS Safety Report 5341874-X (Version None)
Quarter: 2007Q2

REPORT INFORMATION
  Report Type: 
  Country: None (occurrence: None)
  Receive Date: 20070529
  Receipt Date: 20070529
  Transmission Date: 20071010
  Serious: No
  Sender: FDA-Public Use
  Company Number: None

PATIENT
  Age: 69 Year
  Sex: Female

DRUGS (14)
  1. RITUXIMAB [Suspect]
     Indication: DIFFUSE LARGE B-CELL LYMPHOMA
     Dosage: 825MG
  2. CYCLOPHOSPHAMIDE [Concomitant]
  3. PREDNISONE TAB [Concomitant]
  4. VINCRISTINE [Concomitant]
  5. ASPIRIN [Concomitant]
  6. GLUCOSAMINE [Concomitant]
  7. CALCIUM CHLORIDE [Concomitant]
  8. TOLTERODINE [Concomitant]
  9. ENALAPRIL MALEATE [Concomitant]
  10. FUROSEMIDE [Concomitant]
  11. GLIMIPIMIDE [Concomitant]
  12. METFORMIN HCL [Concomitant]
  13. SIMVASTATIN [Concomitant]
  14. INSULIN GLARGINE/REGULAR [Concomitant]

REACTIONS (3)
  - BLOOD PRESSURE DECREASED [None]
  - INTESTINAL PERFORATION [None]
  - WHITE BLOOD CELL COUNT DECREASED [None]
